FAERS Safety Report 4397655-7 (Version None)
Quarter: 2004Q3

REPORT INFORMATION
  Report Type: 
  Country: None (occurrence: None)
  Receive Date: 20040713
  Receipt Date: 20040707
  Transmission Date: 20050211
  Serious: Yes (Hospitalization)
  Sender: FDA-Public Use
  Company Number: DEWYE884707JUL04

PATIENT
  Age: 6 Week
  Sex: Female

DRUGS (5)
  1. VENLAFAXINE HCL [Suspect]
     Indication: DEPRESSION
     Dosage: 150 MG 1X PER 1 DAY ORAL
     Route: 048
     Dates: start: 20040116
  2. EISEN-II-SULFAT  (FERROUS SULFATE) [Concomitant]
  3. MAGNESIUM (MAGNESIUM) [Concomitant]
  4. FOLIC ACID [Concomitant]
  5. PARTUSISTEN (FENOTEROL HYDROBROMIDE) [Concomitant]

REACTIONS (5)
  - BONE MARROW DEPRESSION [None]
  - DEVELOPMENTAL DELAY [None]
  - DRUG EXPOSURE DURING PREGNANCY [None]
  - DRUG EXPOSURE VIA BREAST MILK [None]
  - PALLOR [None]
